FAERS Safety Report 24585797 (Version 1)
Quarter: 2024Q4

REPORT INFORMATION
  Report Type: Report from Study
  Country: CO (occurrence: CO)
  Receive Date: 20241106
  Receipt Date: 20241106
  Transmission Date: 20250115
  Serious: Yes (Other)
  Sender: ABBVIE
  Company Number: CO-ABBVIE-5989821

PATIENT
  Age: 50 Year
  Sex: Female
  Weight: 74 kg

DRUGS (1)
  1. SKYRIZI [Suspect]
     Active Substance: RISANKIZUMAB-RZAA
     Indication: Psoriasis
     Route: 058
     Dates: start: 20230603

REACTIONS (5)
  - Loss of consciousness [Unknown]
  - Snoring [Unknown]
  - Syncope [Not Recovered/Not Resolved]
  - Insomnia [Unknown]
  - Epilepsy [Unknown]

NARRATIVE: CASE EVENT DATE: 20241001
